FAERS Safety Report 16796909 (Version 5)
Quarter: 2020Q3

REPORT INFORMATION
  Report Type: Report from Study
  Country: JP (occurrence: JP)
  Receive Date: 20190911
  Receipt Date: 20200828
  Transmission Date: 20201102
  Serious: Yes (Other)
  Sender: FDA-Public Use
  Company Number: JP-GILEAD-2019-0427747

PATIENT
  Age: 28 Year
  Sex: Male

DRUGS (5)
  1. EMTRICITABINE/RILPIVIRINE/TENOFOVIR DF [Suspect]
     Active Substance: EMTRICITABINE\RILPIVIRINE\TENOFOVIR DISOPROXIL FUMARATE
     Indication: HIV INFECTION
     Dosage: 1 DOSAGE FORM, QD
     Route: 048
     Dates: start: 20150731, end: 20181001
  2. BIOFERMIN R [Concomitant]
     Active Substance: DIETARY SUPPLEMENT\PROBIOTICS
     Indication: PRODUCT USED FOR UNKNOWN INDICATION
     Dosage: UNKNOWN
     Route: 048
     Dates: start: 20190308, end: 20190407
  3. HIRUDOID [Concomitant]
     Active Substance: GLYCOSAMINOGLYCANS
     Indication: DRY SKIN
     Dosage: UNK
     Route: 061
     Dates: start: 20160307, end: 20191115
  4. EMTRICITABINE/RILPIVIRINE/TENOFOVIR ALAFENAMIDE [Interacting]
     Active Substance: EMTRICITABINE\RILPIVIRINE HYDROCHLORIDE\TENOFOVIR ALAFENAMIDE FUMARATE
     Indication: HIV INFECTION
     Dosage: 1 DOSAGE FORM, QD
     Route: 048
     Dates: start: 20181002
  5. TAKECAB [Interacting]
     Active Substance: VONOPRAZAN FUMARATE
     Indication: GASTRITIS
     Route: 048
     Dates: start: 20200217, end: 20200303

REACTIONS (9)
  - Gastritis [Recovering/Resolving]
  - Labelled drug-drug interaction issue [Unknown]
  - Hepatitis C [Not Recovered/Not Resolved]
  - Genital herpes [Recovering/Resolving]
  - Enterocolitis [Recovering/Resolving]
  - Dry skin [Recovering/Resolving]
  - Syphilis [Recovering/Resolving]
  - Seasonal allergy [Recovering/Resolving]
  - Off label use [Unknown]

NARRATIVE: CASE EVENT DATE: 20160307
